FAERS Safety Report 20560025 (Version 1)
Quarter: 2022Q1

REPORT INFORMATION
  Report Type: Spontaneous
  Country: US (occurrence: None)
  Receive Date: 20220304
  Receipt Date: 20220304
  Transmission Date: 20220423
  Serious: Yes (Death)
  Sender: FDA-Public Use
  Company Number: None

PATIENT
  Age: 28 Year
  Sex: Male
  Weight: 69.75 kg

DRUGS (4)
  1. NALOXONE HYDROCHLORIDE [Suspect]
     Active Substance: NALOXONE HYDROCHLORIDE
     Indication: Product used for unknown indication
     Dosage: OTHER QUANTITY : 1 INJECTION(S);?OTHER FREQUENCY : EMERGENCY USE;?
     Route: 030
     Dates: start: 20220212, end: 20220212
  2. HYDROXYZINE HYDROCHLORIDE [Concomitant]
     Active Substance: HYDROXYZINE HYDROCHLORIDE
  3. CLONAZEPAM [Concomitant]
     Active Substance: CLONAZEPAM
  4. IC Amitriptyline HCL [Concomitant]

REACTIONS (8)
  - Needle issue [None]
  - Product design issue [None]
  - Device difficult to use [None]
  - Drug delivery system malfunction [None]
  - Drug dose omission by device [None]
  - Wrong technique in product usage process [None]
  - Complication of drug delivery system removal [None]
  - Device power source issue [None]

NARRATIVE: CASE EVENT DATE: 20220212
